FAERS Safety Report 8167319-2 (Version None)
Quarter: 2012Q1

REPORT INFORMATION
  Report Type: 
  Country: None (occurrence: None)
  Receive Date: 20120227
  Receipt Date: 20120222
  Transmission Date: 20120608
  Serious: Yes (Other)
  Sender: FDA-Public Use
  Company Number: FR-PFIZER INC-2012046212

PATIENT
  Age: 49 Year
  Sex: Female

DRUGS (1)
  1. LYRICA [Suspect]
     Indication: NEURALGIA
     Dosage: 175 MG IN THE MORNING AND 250 MG IN THE EVENING
     Route: 048
     Dates: start: 20090301, end: 20090401

REACTIONS (1)
  - PARKINSON'S DISEASE [None]
